FAERS Safety Report 5157989-5 (Version None)
Quarter: 2006Q4

REPORT INFORMATION
  Report Type: 
  Country: None (occurrence: None)
  Receive Date: 20061127
  Receipt Date: 20061031
  Transmission Date: 20070319
  Serious: Yes (Life-Threatening)
  Sender: FDA-Public Use
  Company Number: DE-BOEHRINGER INGELHEIM PHARMACEUTICALS, INC.-2006-DE-05771DE

PATIENT
  Sex: Male
  Weight: 91 kg

DRUGS (4)
  1. SIFROL [Suspect]
     Indication: RESTLESS LEGS SYNDROME
     Route: 048
     Dates: start: 20061001
  2. CLAVERSAL [Concomitant]
     Indication: COLITIS COLLAGENOUS
  3. ENTOCORT [Concomitant]
     Indication: COLITIS COLLAGENOUS
  4. TELTONAL 480 FT [Concomitant]
     Indication: OSTEOARTHRITIS

REACTIONS (5)
  - ANGINA PECTORIS [None]
  - ARRHYTHMIA [None]
  - HEADACHE [None]
  - HYPERTENSION [None]
  - PALPITATIONS [None]
